FAERS Safety Report 24594561 (Version 1)
Quarter: 2024Q4

REPORT INFORMATION
  Report Type: Other
  Country: IN (occurrence: IN)
  Receive Date: 20241108
  Receipt Date: 20241108
  Transmission Date: 20250115
  Serious: Yes (Other)
  Sender: B BRAUN
  Company Number: IN-B.Braun Medical Inc.-2164723

PATIENT
  Age: 20 Year
  Sex: Male

DRUGS (1)
  1. LEVETIRACETAM [Suspect]
     Active Substance: LEVETIRACETAM
     Indication: Partial seizures

REACTIONS (1)
  - Parkinsonism [Recovered/Resolved]
